FAERS Safety Report 11049132 (Version 1)
Quarter: 2015Q2

REPORT INFORMATION
  Report Type: Report from Study
  Country: US (occurrence: US)
  Receive Date: 20150420
  Receipt Date: 20150420
  Transmission Date: 20150821
  Serious: Yes (Other)
  Sender: FDA-Public Use
  Company Number: US-UCBSA-2015012130

PATIENT
  Age: 30 Year
  Sex: Female

DRUGS (3)
  1. TEGRETOL [Concomitant]
     Active Substance: CARBAMAZEPINE
     Indication: EPILEPSY
  2. LEVETIRACETAM. [Suspect]
     Active Substance: LEVETIRACETAM
     Indication: EPILEPSY
     Dosage: 3000 MG
  3. INSULIN [Concomitant]
     Active Substance: INSULIN NOS
     Indication: GESTATIONAL DIABETES
     Dosage: UNK
     Dates: start: 2014

REACTIONS (4)
  - Abortion induced [Unknown]
  - Oligohydramnios [Unknown]
  - Pregnancy [Unknown]
  - Gestational diabetes [Unknown]

NARRATIVE: CASE EVENT DATE: 2014
